FAERS Safety Report 15488432 (Version 1)
Quarter: 2018Q4

REPORT INFORMATION
  Report Type: Spontaneous
  Country: US (occurrence: US)
  Receive Date: 20181003
  Receipt Date: 20181003
  Transmission Date: 20190205
  Serious: Yes (Hospitalization)
  Sender: FDA-Public Use
  Company Number: None

PATIENT
  Age: 71 Year
  Sex: Female

DRUGS (16)
  1. CLONIDINE. [Concomitant]
     Active Substance: CLONIDINE
  2. LISINOPRIL. [Concomitant]
     Active Substance: LISINOPRIL
  3. JANUVIA [Concomitant]
     Active Substance: SITAGLIPTIN PHOSPHATE
  4. METOPROLOL TARTRATE. [Concomitant]
     Active Substance: METOPROLOL TARTRATE
  5. OMEPRAZOLE. [Concomitant]
     Active Substance: OMEPRAZOLE
  6. CARTIA [Concomitant]
  7. LANTUS [Concomitant]
     Active Substance: INSULIN GLARGINE
  8. HYDRAZALINE [Concomitant]
  9. ACYCLOVIR. [Concomitant]
     Active Substance: ACYCLOVIR
  10. DICLOFENAC [Concomitant]
     Active Substance: DICLOFENAC
  11. MECLIZINE [Concomitant]
     Active Substance: MECLIZINE HYDROCHLORIDE
  12. FUROSEMIDE. [Concomitant]
     Active Substance: FUROSEMIDE
  13. REPATHA [Suspect]
     Active Substance: EVOLOCUMAB
     Indication: TYPE V HYPERLIPIDAEMIA
     Dosage: ?          OTHER FREQUENCY:Q 2 WEEKS;?
     Route: 058
     Dates: start: 20180821
  14. ALLOPURINOL. [Concomitant]
     Active Substance: ALLOPURINOL
  15. PREDNISONE. [Concomitant]
     Active Substance: PREDNISONE
  16. ISOSORB MONO [Concomitant]
     Active Substance: ISOSORBIDE MONONITRATE

REACTIONS (2)
  - Hospitalisation [None]
  - Product dose omission [None]

NARRATIVE: CASE EVENT DATE: 20180917
